FAERS Safety Report 19416441 (Version 1)
Quarter: 2021Q2

REPORT INFORMATION
  Report Type: Spontaneous
  Country: NO (occurrence: NO)
  Receive Date: 20210614
  Receipt Date: 20210614
  Transmission Date: 20210717
  Serious: Yes (Other)
  Sender: FDA-Public Use
  Company Number: NO-TAKEDA-2021TUS035948

PATIENT
  Age: 32 Year
  Sex: Female

DRUGS (2)
  1. ADUVANZ [Suspect]
     Active Substance: LISDEXAMFETAMINE DIMESYLATE
     Dosage: 30 MILLIGRAM, QD
     Route: 048
     Dates: end: 20210430
  2. ADUVANZ [Suspect]
     Active Substance: LISDEXAMFETAMINE DIMESYLATE
     Indication: ATTENTION DEFICIT HYPERACTIVITY DISORDER
     Dosage: 50 MILLIGRAM, QD
     Route: 048
     Dates: start: 20210501, end: 20210511

REACTIONS (2)
  - Urinary retention [Recovered/Resolved]
  - Micturition urgency [Recovered/Resolved]

NARRATIVE: CASE EVENT DATE: 20210501
